FAERS Safety Report 7351059-3 (Version None)
Quarter: 2011Q1

REPORT INFORMATION
  Report Type: 
  Country: None (occurrence: None)
  Receive Date: 20110314
  Receipt Date: 20110302
  Transmission Date: 20110831
  Serious: Yes (Other)
  Sender: FDA-Public Use
  Company Number: DE-BAYER-201023501GPV

PATIENT
  Sex: Female
  Weight: 68 kg

DRUGS (1)
  1. QLAIRA [Suspect]
     Indication: CONTRACEPTION
     Route: 048
     Dates: start: 20091001, end: 20100419

REACTIONS (3)
  - PREMATURE LABOUR [None]
  - CAESAREAN SECTION [None]
  - PREGNANCY ON CONTRACEPTIVE [None]
